FAERS Safety Report 20713802 (Version 1)
Quarter: 2022Q2

REPORT INFORMATION
  Report Type: Spontaneous
  Country: US (occurrence: None)
  Receive Date: 20220414
  Receipt Date: 20220414
  Transmission Date: 20220721
  Serious: No
  Sender: FDA-Public Use
  Company Number: None

PATIENT
  Age: 44 Year
  Sex: Male

DRUGS (6)
  1. GONADORELIN [Suspect]
     Active Substance: GONADORELIN
     Indication: Testicular atrophy
     Dosage: OTHER FREQUENCY : FOR 2 DAYS EACH WK;?
     Route: 058
     Dates: start: 20200908
  2. IPAMORELIN [Concomitant]
     Active Substance: IPAMORELIN
  3. ANASTROZOLE [Concomitant]
  4. TESTOSTERONE CYPIONATE [Concomitant]
     Active Substance: TESTOSTERONE CYPIONATE
  5. METHIONINE [Concomitant]
  6. GLUTAMINE [Concomitant]
     Active Substance: GLUTAMINE

REACTIONS (5)
  - Recalled product administered [None]
  - Rash [None]
  - Injection related reaction [None]
  - Skin disorder [None]
  - Paraesthesia [None]

NARRATIVE: CASE EVENT DATE: 20220328
